FAERS Safety Report 7959532-1 (Version None)
Quarter: 2011Q4

REPORT INFORMATION
  Report Type: 
  Country: None (occurrence: None)
  Receive Date: 20111206
  Receipt Date: 20111201
  Transmission Date: 20120403
  Serious: Yes (Other)
  Sender: FDA-Public Use
  Company Number: JP-ROCHE-729790

PATIENT
  Age: 30 Year
  Sex: Male

DRUGS (5)
  1. MYCOPHENOLATE MOFETIL (CELLCEPT) [Suspect]
     Indication: CHRONIC GRAFT VERSUS HOST DISEASE
     Dosage: NOTE: DOSAGE IS UNCERTAIN.
     Route: 048
  2. FLUDARABINE PHOSPHATE [Concomitant]
     Route: 065
  3. CYCLOSPORINE [Concomitant]
     Dosage: DOSAGE IS UNCERTAIN.
     Route: 065
  4. PREDNISOLONE [Concomitant]
     Route: 065
  5. CYCLOPHOSPHAMIDE [Concomitant]
     Dosage: DOSAGE IS UNCERTAIN.
     Route: 065

REACTIONS (1)
  - PNEUMATOSIS INTESTINALIS [None]
